FAERS Safety Report 5060382-7 (Version None)
Quarter: 2006Q3

REPORT INFORMATION
  Report Type: 
  Country: None (occurrence: None)
  Receive Date: 20060720
  Receipt Date: 20060705
  Transmission Date: 20061208
  Serious: Yes (Death)
  Sender: FDA-Public Use
  Company Number: 060711-0000666

PATIENT
  Age: 52 Year
  Sex: Male

DRUGS (1)
  1. METHAMPHETAMINE (METHAMPHETAMINE HYDROCHLORIDE) [Suspect]
     Dosage: IV
     Route: 042

REACTIONS (3)
  - CEREBRAL HAEMORRHAGE [None]
  - DRUG TOXICITY [None]
  - ILL-DEFINED DISORDER [None]
